FAERS Safety Report 18185645 (Version 1)
Quarter: 2020Q3

REPORT INFORMATION
  Report Type: Spontaneous
  Country: US (occurrence: US)
  Receive Date: 20200821
  Receipt Date: 20200821
  Transmission Date: 20201103
  Serious: Yes (Other)
  Sender: FDA-Public Use
  Company Number: None

PATIENT
  Age: 38 Month
  Sex: Female
  Weight: 56.25 kg

DRUGS (5)
  1. DYSPORT [Suspect]
     Active Substance: ABOBOTULINUMTOXINA
     Indication: DERMATITIS CONTACT
     Dates: start: 20200715, end: 20200715
  2. ACTIVATED CHARCOAL. [Concomitant]
     Active Substance: ACTIVATED CHARCOAL
  3. COPPER [Concomitant]
     Active Substance: COPPER
  4. ASHWAGANDHA [Concomitant]
     Active Substance: HERBALS
  5. ABILIFY [Concomitant]
     Active Substance: ARIPIPRAZOLE

REACTIONS (3)
  - Feeling abnormal [None]
  - Dizziness [None]
  - Aphasia [None]

NARRATIVE: CASE EVENT DATE: 20200724
